FAERS Safety Report 8118254-7 (Version None)
Quarter: 2012Q1

REPORT INFORMATION
  Report Type: 
  Country: None (occurrence: None)
  Receive Date: 20120201
  Receipt Date: 20120120
  Transmission Date: 20120608
  Serious: Yes (Other)
  Sender: FDA-Public Use
  Company Number: 2012MA000373

PATIENT
  Age: 85 Year
  Sex: Male

DRUGS (7)
  1. FINASTERIDE [Suspect]
     Dosage: 5 MG;QD;PO
     Route: 048
     Dates: end: 20111201
  2. QUININE SULFATE [Concomitant]
  3. ACETAMINOPHEN [Concomitant]
  4. LANSOPRAZOLE [Concomitant]
  5. ASPIRIN [Concomitant]
  6. BISOPROLOL FUMARATE [Concomitant]
  7. LISINOPRIL [Concomitant]

REACTIONS (1)
  - CEREBROVASCULAR ACCIDENT [None]
